FAERS Safety Report 8514169-0 (Version None)
Quarter: 2012Q3

REPORT INFORMATION
  Report Type: 
  Country: None (occurrence: None)
  Receive Date: 20120717
  Receipt Date: 20120705
  Transmission Date: 20120928
  Serious: Yes (Other)
  Sender: FDA-Public Use
  Company Number: JP-BRISTOL-MYERS SQUIBB COMPANY-16749186

PATIENT
  Age: 33 Year
  Sex: Male
  Weight: 55 kg

DRUGS (9)
  1. ROHYPNOL [Concomitant]
     Dosage: TAB
  2. ABILIFY [Suspect]
     Dosage: 1DF:6MG. IN 28JUN2012 DOSE INCREASED
     Route: 048
     Dates: start: 20060101, end: 20120630
  3. AMOBANTES [Concomitant]
     Dosage: TAB
  4. BROMOCRIPTINE MESYLATE [Concomitant]
     Dosage: TABS
  5. LORAZEPAM [Concomitant]
     Dosage: TAB
  6. PROMETHAZINE HCL [Concomitant]
     Dosage: TAB
  7. RISPERIDONE [Concomitant]
     Dosage: TAB
  8. TASMOLIN [Concomitant]
     Dosage: TAB
  9. GASMOTIN [Concomitant]
     Dosage: TAB

REACTIONS (10)
  - VOMITING [None]
  - BLOOD CREATINE PHOSPHOKINASE INCREASED [None]
  - ASPARTATE AMINOTRANSFERASE INCREASED [None]
  - POLYURIA [None]
  - GLUCOSE URINE PRESENT [None]
  - WEIGHT DECREASED [None]
  - ELECTROLYTE DEPLETION [None]
  - ALANINE AMINOTRANSFERASE INCREASED [None]
  - NAUSEA [None]
  - BLOOD LACTATE DEHYDROGENASE INCREASED [None]
